FAERS Safety Report 10492528 (Version 4)
Quarter: 2015Q3

REPORT INFORMATION
  Report Type: Spontaneous
  Country: US (occurrence: US)
  Receive Date: 20141002
  Receipt Date: 20150915
  Transmission Date: 20151125
  Serious: No
  Sender: FDA-Public Use
  Company Number: US-GLAXOSMITHKLINE-A1072219A

PATIENT
  Age: 59 Year
  Sex: Female

DRUGS (2)
  1. VENTOLIN HFA [Suspect]
     Active Substance: ALBUTEROL SULFATE
     Indication: PRODUCT USED FOR UNKNOWN INDICATION
     Dates: start: 20110510
  2. ADVAIR DISKUS [Suspect]
     Active Substance: FLUTICASONE PROPIONATE\SALMETEROL XINAFOATE
     Indication: CHRONIC OBSTRUCTIVE PULMONARY DISEASE
     Dosage: UNK, U
     Route: 065
     Dates: start: 1998

REACTIONS (12)
  - Stress [Not Recovered/Not Resolved]
  - Dizziness [Unknown]
  - Ligament sprain [Unknown]
  - Drug dose omission [Not Recovered/Not Resolved]
  - Vertigo [Unknown]
  - Ankle fracture [Unknown]
  - Activities of daily living impaired [Unknown]
  - Thermal burn [Unknown]
  - Feeling abnormal [Not Recovered/Not Resolved]
  - Fall [Unknown]
  - Limb injury [Unknown]
  - Burns second degree [Unknown]

NARRATIVE: CASE EVENT DATE: 2014
